FAERS Safety Report 9388013 (Version 1)
Quarter: 2013Q3

REPORT INFORMATION
  Report Type: Report from Study
  Country: CA (occurrence: CA)
  Receive Date: 20130708
  Receipt Date: 20130708
  Transmission Date: 20140515
  Serious: Yes (Hospitalization)
  Sender: FDA-Public Use
  Company Number: CA-BAYER-2013-081006

PATIENT
  Age: 67 Year
  Sex: Male

DRUGS (20)
  1. ASPIRIN [Suspect]
     Indication: ACUTE CORONARY SYNDROME
     Dosage: 81 MG, QD
     Route: 065
     Dates: start: 2006
  2. ASA [Suspect]
     Indication: ACUTE CORONARY SYNDROME
     Dosage: 160 MG, QD
     Route: 065
     Dates: start: 20121010, end: 20121010
  3. PLAVIX [Suspect]
     Indication: ACUTE CORONARY SYNDROME
     Dosage: 300 MG, 1 EVERY 1DAY
     Route: 048
     Dates: start: 20121010, end: 20121010
  4. PLAVIX [Suspect]
     Indication: ACUTE CORONARY SYNDROME
     Dosage: 75 MG, 1 EVERY 1DAY
     Route: 048
     Dates: start: 20121011
  5. ALLOPURINOL [Concomitant]
  6. ARIXTRA [Concomitant]
     Dosage: UNK
     Route: 042
     Dates: start: 20121010, end: 20121010
  7. BISOPROLOL [Concomitant]
  8. HUMALOG [Concomitant]
  9. IRBESARTAN [Concomitant]
  10. LANTUS [Concomitant]
     Route: 058
  11. LASIX [Concomitant]
  12. LIPITOR [Concomitant]
  13. METOLAZONE [Concomitant]
  14. ONE ALPHA [Concomitant]
  15. SEREVENT [Concomitant]
  16. SPIRIVA [Concomitant]
  17. VENTOLIN [Concomitant]
  18. ALDACTONE [SPIRONOLACTONE] [Concomitant]
  19. CALCIDOL [Concomitant]
  20. SALMETEROL [Concomitant]

REACTIONS (2)
  - Blood creatinine increased [Recovering/Resolving]
  - Catheter site haematoma [Recovering/Resolving]
